FAERS Safety Report 18090563 (Version 1)
Quarter: 2020Q3

REPORT INFORMATION
  Report Type: Other
  Country: US (occurrence: US)
  Receive Date: 20200730
  Receipt Date: 20200730
  Transmission Date: 20201103
  Serious: Yes (Hospitalization)
  Sender: FDA-Public Use
  Company Number: US-ROCHE-2649941

PATIENT
  Sex: Female

DRUGS (27)
  1. XELODA [Suspect]
     Active Substance: CAPECITABINE
     Indication: BREAST CANCER FEMALE
     Dosage: TAKE 4 TABLET(S) BY MOUTH TWICE A DAY 2 WEEK(S) ON DAYS 1?14 DAYS OF EACH 21 DAYS?CYCLE. TAKE WITH W
     Route: 048
  2. ANASTROZOLE. [Concomitant]
     Active Substance: ANASTROZOLE
     Route: 048
  3. LIDOCAINE;PRILOCAINE [Concomitant]
     Dosage: 1 TOPICAL APPLICATION TOPICALLY AS DIRECTED
     Route: 061
  4. TRAMADOL. [Concomitant]
     Active Substance: TRAMADOL
     Indication: PAIN
     Dosage: 1 TABLET EVERY 4 TO 6 HOURS
     Route: 048
  5. HYDROCODONE/ACETAMINOPHEN [Concomitant]
     Active Substance: ACETAMINOPHEN\HYDROCODONE
     Indication: PAIN
     Dosage: PO Q 4 H?325 MG
     Route: 048
  6. LORAZEPAM. [Concomitant]
     Active Substance: LORAZEPAM
     Dosage: 1 TABLET PO QHS AS NEEDED SLEEP
     Route: 048
  7. ABEMACICLIB [Concomitant]
     Active Substance: ABEMACICLIB
     Dosage: TAKE WHOLE WITH WATER AT THE SAME TIME EACH DAY. TOTAL DAILY DOSE IS 300 MG
     Route: 048
  8. LEVOTHYROXINE. [Concomitant]
     Active Substance: LEVOTHYROXINE
     Dosage: 112 MCG
     Route: 048
  9. ONDANSETRON [Concomitant]
     Active Substance: ONDANSETRON
     Indication: NAUSEA
     Dosage: 1 TABLET ORALLY EVERY 8 HOURS AS NEEDED FOR NAUSEA. TAKE 1 TAB BY MOUTH EVERY 8 HOUR AS NEEDED FOR N
     Route: 048
  10. BUSPIRONE [Concomitant]
     Active Substance: BUSPIRONE HYDROCHLORIDE
     Dosage: 1 TAB PO BID
     Route: 048
  11. XELODA [Suspect]
     Active Substance: CAPECITABINE
     Indication: NEOPLASM MALIGNANT
     Dosage: TAKE 4 TABLET(S) BY MOUTH TWICE A DAY 2 WEEK(S) ON DAYS 1?14 DAYS OF EACH 21 DAYS?CYCLE. TAKE WITH W
     Route: 048
  12. DOCUSATE SODIUM;SENNOSIDE B [Concomitant]
     Active Substance: DOCUSATE SODIUM\SENNOSIDE B
     Dosage: 50 MG TABLET?TAKE 1 TAB BY MOUTH TWICE DAILY MAY INCREASE AS NEEDED UPTO MAX OF 8 TABS/ DAY
     Route: 048
  13. GINGER. [Concomitant]
     Active Substance: GINGER
     Route: 048
  14. ACETAMINOPHEN. [Concomitant]
     Active Substance: ACETAMINOPHEN
     Dosage: 2 CAPSULES PO AS DIRECTED
     Route: 048
  15. GUAIFENESIN. [Concomitant]
     Active Substance: GUAIFENESIN
     Dosage: EXTENDED RELEASE BIPHASIC 12 HR PO Q12 H
     Route: 048
  16. OMEPRAZOLE. [Concomitant]
     Active Substance: OMEPRAZOLE
     Dosage: 1 CAPSULE ENTERIC COATED PO DAILY
     Route: 048
  17. TAMOXIFEN [Concomitant]
     Active Substance: TAMOXIFEN
     Dosage: 1 TABLET ORALLY DAILY
     Route: 048
  18. DICLOFENAC [Concomitant]
     Active Substance: DICLOFENAC
     Indication: PAIN
     Dosage: APPLY TOPICALLY TO KNEES AND LOW BACK UP TO 4 TIMES PER DAY AS NEEDED FOR PAIN
     Route: 061
  19. LOPERAMIDE [Concomitant]
     Active Substance: LOPERAMIDE
     Indication: DIARRHOEA
     Dosage: 1 CAPSULE ORALLY AS DIRECTED. 2 CAPS WITH FIRST STOOL, THEN 1 CAP FOR EACH ADDITIONAL LOOSE STOOL. M
     Route: 048
  20. LATISSE [Concomitant]
     Active Substance: BIMATOPROST
     Dosage: 0.03% DROPS WITH APPLICATOR 1 UNIT INTO THE EYE. PLACE ONE DROP ON APPLICATOR AND?APPLY TO SKIN OF U
     Route: 061
  21. PROCHLORPERAZINE. [Concomitant]
     Active Substance: PROCHLORPERAZINE
     Dosage: TAKE 1 TABLET BY MOUTH EVERY 4 TO 6 HOURS AS NEEDED FOR NAUSEA
     Route: 048
  22. VITAMIN D3 [Concomitant]
     Active Substance: CHOLECALCIFEROL
     Route: 048
  23. CHOLECALCIFEROL [Concomitant]
     Active Substance: CHOLECALCIFEROL
     Dosage: 1 CAPSULE PO DAILY
     Route: 048
  24. IBUPROFEN. [Concomitant]
     Active Substance: IBUPROFEN
     Dosage: 3 TABLETS PO Q 8 H FOR PAIN
     Route: 048
  25. LISINOPRIL. [Concomitant]
     Active Substance: LISINOPRIL
     Dosage: 1 TABLET PO DAILY
     Route: 048
  26. TURMERIC [Concomitant]
     Active Substance: HERBALS\TURMERIC
     Dosage: 1 CAPSULE PO DAILY
     Route: 048
  27. CALCIUM CARBONATE. [Concomitant]
     Active Substance: CALCIUM CARBONATE
     Route: 048

REACTIONS (1)
  - Intestinal obstruction [Unknown]
